FAERS Safety Report 4296958-4 (Version None)
Quarter: 2004Q1

REPORT INFORMATION
  Report Type: 
  Country: None (occurrence: None)
  Receive Date: 20040213
  Receipt Date: 20040209
  Transmission Date: 20041129
  Serious: Yes (Hospitalization)
  Sender: FDA-Public Use
  Company Number: 200410132BVD

PATIENT
  Age: 83 Year
  Sex: Female

DRUGS (9)
  1. GLUCOBAY [Suspect]
     Indication: DIABETES MELLITUS NON-INSULIN-DEPENDENT
     Dosage: 150 MG, TOTAL DAILY, ORAL
     Route: 048
     Dates: end: 20030822
  2. DELIX PLUS [Suspect]
     Dosage: 5 MG, TOTAL DAILY, ORAL
     Route: 048
     Dates: start: 20010101
  3. CONCOR PLUS [Concomitant]
  4. GODAMED TAH [Concomitant]
  5. LAXOBERAL [Concomitant]
  6. NITROGLYCERIN [Concomitant]
  7. SORTIS [Concomitant]
  8. UNAT [Concomitant]
  9. ZOLOFT [Concomitant]

REACTIONS (4)
  - COUGH [None]
  - DRUG INTERACTION [None]
  - HAEMOGLOBIN DECREASED [None]
  - HYPOGLYCAEMIA [None]
